FAERS Safety Report 8210186-9 (Version None)
Quarter: 2012Q1

REPORT INFORMATION
  Report Type: 
  Country: None (occurrence: None)
  Receive Date: 20120314
  Receipt Date: 20120207
  Transmission Date: 20120608
  Serious: No
  Sender: FDA-Public Use
  Company Number: US-ASTRAZENECA-2011SE70793

PATIENT
  Age: 32 Year
  Sex: Male
  Weight: 117.9 kg

DRUGS (3)
  1. SEROQUEL [Suspect]
     Route: 048
  2. TOPROL-XL [Suspect]
     Route: 048
  3. HYPERTENSION MEDICATION [Concomitant]

REACTIONS (5)
  - DRUG INEFFECTIVE [None]
  - IRRITABILITY [None]
  - DRUG DOSE OMISSION [None]
  - NERVOUSNESS [None]
  - TREMOR [None]
